FAERS Safety Report 18784025 (Version 2)
Quarter: 2022Q2

REPORT INFORMATION
  Report Type: Spontaneous
  Country: US (occurrence: US)
  Receive Date: 20210125
  Receipt Date: 20220421
  Transmission Date: 20220721
  Serious: No
  Sender: FDA-Public Use
  Company Number: US-PFIZER INC-2021045121

PATIENT
  Age: 78 Year
  Sex: Female
  Weight: 70.295 kg

DRUGS (1)
  1. IBRANCE [Suspect]
     Active Substance: PALBOCICLIB
     Indication: Breast cancer
     Dosage: ONCE DAILY FOR 21 DAYS
     Route: 048
     Dates: start: 202007

REACTIONS (2)
  - Alopecia [Unknown]
  - Hypoacusis [Unknown]
